FAERS Safety Report 5034782-5 (Version None)
Quarter: 2006Q2

REPORT INFORMATION
  Report Type: 
  Country: None (occurrence: None)
  Receive Date: 20060502
  Receipt Date: 20060228
  Transmission Date: 20061013
  Serious: Yes (Hospitalization)
  Sender: FDA-Public Use
  Company Number: 251218

PATIENT
  Age: 62 Year
  Sex: Female

DRUGS (2)
  1. LEVEMIR FLEXPEN(INSULIN DETEMIR) SOLUTION FOR INJECTION, .0024MOL/L [Suspect]
     Indication: INSULIN-REQUIRING TYPE II DIABETES MELLITUS
     Dosage: 15 IU, BID, SUBCUTANEOUS
     Route: 058
     Dates: start: 20060216, end: 20060220
  2. HUMALOG [Concomitant]

REACTIONS (1)
  - DIABETIC KETOACIDOSIS [None]
